FAERS Safety Report 9632452 (Version 1)
Quarter: 2013Q4

REPORT INFORMATION
  Report Type: Report from Study
  Country: US (occurrence: US)
  Receive Date: 20131018
  Receipt Date: 20131018
  Transmission Date: 20140711
  Serious: Yes (Other)
  Sender: FDA-Public Use
  Company Number: US-JNJFOC-20131007825

PATIENT
  Age: 67 Year
  Sex: Female
  Weight: 72.58 kg

DRUGS (9)
  1. REMICADE [Suspect]
     Indication: PSORIATIC ARTHROPATHY
     Route: 042
  2. REMICADE [Suspect]
     Indication: PSORIATIC ARTHROPATHY
     Route: 042
     Dates: start: 20130807
  3. METHOTREXATE [Suspect]
     Indication: PRODUCT USED FOR UNKNOWN INDICATION
     Route: 065
  4. EFFEXOR [Concomitant]
     Indication: BIPOLAR DISORDER
     Route: 048
     Dates: start: 2012
  5. LAMICTAL [Concomitant]
     Indication: DRUG THERAPY
     Dosage: 100 MG, 25MG ONE PILL IN??MORNING AND THREE PILLS (75MG) AT??NIGHT
     Route: 048
     Dates: start: 2012
  6. ATIVAN [Concomitant]
     Indication: BIPOLAR DISORDER
     Dosage: 1 MG IN MORNING AND A HALF PILL (0.5 MG) IN THE AFTERNOON AND 1 MG  BED/ORAL
     Route: 048
     Dates: start: 2012
  7. ATIVAN [Concomitant]
     Indication: DRUG THERAPY
     Dosage: 1 MG IN MORNING AND A HALF PILL (0.5 MG) IN THE AFTERNOON AND 1 MG  BED/ORAL
     Route: 048
     Dates: start: 2012
  8. PROTONIX [Concomitant]
     Indication: GASTROOESOPHAGEAL REFLUX DISEASE
     Route: 048
  9. GABAPENTIN [Concomitant]
     Indication: ARTHRITIS
     Route: 048

REACTIONS (12)
  - Colitis [Not Recovered/Not Resolved]
  - Blood potassium decreased [Recovering/Resolving]
  - Infection [Unknown]
  - Decreased immune responsiveness [Not Recovered/Not Resolved]
  - Psoriatic arthropathy [Not Recovered/Not Resolved]
  - Psoriasis [Not Recovered/Not Resolved]
  - Diarrhoea [Not Recovered/Not Resolved]
  - Abnormal loss of weight [Not Recovered/Not Resolved]
  - Cough [Recovered/Resolved]
  - Decreased appetite [Not Recovered/Not Resolved]
  - Tooth extraction [Unknown]
  - Malaise [Unknown]
